FAERS Safety Report 5083258-8 (Version None)
Quarter: 2006Q3

REPORT INFORMATION
  Report Type: 
  Country: None (occurrence: None)
  Receive Date: 20060816
  Receipt Date: 20060816
  Transmission Date: 20061208
  Serious: Yes (Hospitalization)
  Sender: FDA-Public Use
  Company Number: None

PATIENT
  Sex: Male
  Weight: 82.2 kg

DRUGS (6)
  1. KETOROLAC  30MG [Suspect]
     Indication: POSTOPERATIVE ANALGESIA
     Dosage: 30MG EVERY 6 HOURS IV  4 DOSES
     Route: 042
     Dates: start: 20051031, end: 20051101
  2. HYDROCODONE/ACETOMINOPHEN [Concomitant]
  3. OXYCODONE/ACETOMINOPHEN [Concomitant]
  4. MORPHINE [Concomitant]
  5. KETOROLAC TROMETHAMINE [Concomitant]
  6. CEFAZOLIN [Concomitant]

REACTIONS (3)
  - PYREXIA [None]
  - RENAL FAILURE ACUTE [None]
  - RENAL TUBULAR NECROSIS [None]
